FAERS Safety Report 21678376 (Version 1)
Quarter: 2022Q4

REPORT INFORMATION
  Report Type: Spontaneous
  Country: ES (occurrence: ES)
  Receive Date: 20221203
  Receipt Date: 20221203
  Transmission Date: 20230112
  Serious: Yes (Hospitalization)
  Sender: FDA-Public Use
  Company Number: None

PATIENT
  Age: 14 Year
  Sex: Male

DRUGS (1)
  1. AMOXICILLIN\CLAVULANIC ACID [Suspect]
     Active Substance: AMOXICILLIN\CLAVULANIC ACID
     Indication: Pharyngotonsillitis
     Dosage: UNKNOWN  , AMOXICILINA/ACIDO CLAVULANICO    ,500 MG/125 MG 24 TABLETS , THERAPY END DATE : NASK
     Dates: start: 20220407

REACTIONS (2)
  - Anaphylactic shock [Recovered/Resolved]
  - Medication error [Recovered/Resolved]

NARRATIVE: CASE EVENT DATE: 20220407
